FAERS Safety Report 6912039-2 (Version None)
Quarter: 2010Q3

REPORT INFORMATION
  Report Type: 
  Country: None (occurrence: None)
  Receive Date: 20100806
  Receipt Date: 20071109
  Transmission Date: 20110219
  Serious: Yes (Other)
  Sender: FDA-Public Use
  Company Number: US-PFIZER INC-2007094308

PATIENT
  Age: 64 Year
  Sex: Female

DRUGS (1)
  1. VFEND [Suspect]
     Indication: FUNGAL INFECTION

REACTIONS (2)
  - DYSPNOEA [None]
  - PRURITUS [None]
